FAERS Safety Report 5624320-8 (Version None)
Quarter: 2008Q1

REPORT INFORMATION
  Report Type: 
  Country: None (occurrence: None)
  Receive Date: 20080206
  Receipt Date: 20080206
  Transmission Date: 20080703
  Serious: Yes (Life-Threatening, Other)
  Sender: FDA-Public Use
  Company Number: None

PATIENT
  Age: 55 Year
  Sex: Male
  Weight: 113.3993 kg

DRUGS (2)
  1. FENTANYL TRANSDERMAL SYSTEM [Suspect]
     Indication: INTERVERTEBRAL DISC DISORDER
     Dosage: CONTINUOUS 72 HOURS TRANSDERMAL
     Route: 062
     Dates: start: 20070920, end: 20071010
  2. FENTANYL TRANSDERMAL SYSTEM [Suspect]
     Indication: INTERVERTEBRAL DISC DISORDER
     Dosage: CONTINUOUS 72 HOURS TRANSDERMAL
     Route: 062
     Dates: start: 20080201, end: 20080204

REACTIONS (7)
  - ACCIDENTAL EXPOSURE [None]
  - APPLICATION SITE BURN [None]
  - APPLICATION SITE RASH [None]
  - DRUG INEFFECTIVE [None]
  - EYE INFLAMMATION [None]
  - INCORRECT DRUG ADMINISTRATION DURATION [None]
  - PHARMACEUTICAL PRODUCT COMPLAINT [None]
